FAERS Safety Report 6197357-0 (Version None)
Quarter: 2009Q2

REPORT INFORMATION
  Report Type: 
  Country: None (occurrence: None)
  Receive Date: 20090518
  Receipt Date: 20090507
  Transmission Date: 20091009
  Serious: Yes (Other)
  Sender: FDA-Public Use
  Company Number: 2009SP009831

PATIENT
  Age: 56 Year
  Sex: Male

DRUGS (2)
  1. RIBAVIRIN [Suspect]
     Indication: HEPATITIS C
     Dosage: 1200 MG; QD; PO
     Route: 048
  2. PEGINTERFERON ALFA-2B (S-P) [Suspect]
     Indication: HEPATITIS C
     Dosage: 150 MCG; QW;

REACTIONS (5)
  - ANAEMIA [None]
  - NEUTROPENIA [None]
  - PORPHYRIA NON-ACUTE [None]
  - SERUM FERRITIN INCREASED [None]
  - TRANSFERRIN SATURATION INCREASED [None]
